FAERS Safety Report 8928143 (Version 1)
Quarter: 2012Q4

REPORT INFORMATION
  Report Type: 
  Country: US (occurrence: US)
  Receive Date: 20121128
  Receipt Date: 20121128
  Transmission Date: 20130627
  Serious: Yes (Hospitalization)
  Sender: FDA-Public Use
  Company Number: US-BIOGENIDEC-2012BI054966

PATIENT
  Age: 43 Year
  Sex: Male

DRUGS (3)
  1. AVONEX [Suspect]
     Indication: MULTIPLE SCLEROSIS
     Route: 030
     Dates: start: 20120501, end: 201210
  2. AVONEX [Suspect]
     Indication: MULTIPLE SCLEROSIS
     Route: 030
     Dates: start: 201211, end: 201211
  3. AVONEX [Suspect]
     Indication: MULTIPLE SCLEROSIS
     Route: 030
     Dates: start: 201211

REACTIONS (7)
  - Pneumonia [Recovered/Resolved]
  - Brain neoplasm [Unknown]
  - Uhthoff^s phenomenon [Recovered/Resolved]
  - Tremor [Recovered/Resolved]
  - Motor dysfunction [Recovered/Resolved]
  - Gait disturbance [Recovered/Resolved]
  - Influenza like illness [Recovered/Resolved]
